FAERS Safety Report 9540976 (Version 2)
Quarter: 2013Q4

REPORT INFORMATION
  Report Type: Report from Study
  Country: BR (occurrence: BR)
  Receive Date: 20130922
  Receipt Date: 20131110
  Transmission Date: 20140711
  Serious: Yes (Hospitalization)
  Sender: FDA-Public Use
  Company Number: BR-US-EMD SERONO, INC.-7237457

PATIENT
  Age: 23 Year
  Sex: Female

DRUGS (2)
  1. REBIF [Suspect]
     Indication: RELAPSING-REMITTING MULTIPLE SCLEROSIS
     Dates: start: 20110411, end: 20120508
  2. REBIF [Suspect]
     Dates: start: 20120508

REACTIONS (2)
  - Paraesthesia [Recovered/Resolved]
  - Pain in extremity [Recovered/Resolved]
